FAERS Safety Report 9198784 (Version 1)
Quarter: 2013Q1

REPORT INFORMATION
  Report Type: Spontaneous
  Country: US (occurrence: None)
  Receive Date: 20130327
  Receipt Date: 20130327
  Transmission Date: 20140127
  Serious: No
  Sender: FDA-Public Use
  Company Number: None

PATIENT
  Age: 55 Year
  Sex: Female

DRUGS (1)
  1. XELODA [Suspect]
     Dosage: 4500MG DAILY 7 DAYS ON 7 DAYS OFF PO
     Route: 048
     Dates: start: 20120228, end: 20130325

REACTIONS (1)
  - Palmar-plantar erythrodysaesthesia syndrome [None]
